FAERS Safety Report 17455989 (Version 1)
Quarter: 2020Q1

REPORT INFORMATION
  Report Type: Spontaneous
  Country: US (occurrence: US)
  Receive Date: 20200225
  Receipt Date: 20200225
  Transmission Date: 20200409
  Serious: No
  Sender: FDA-Public Use
  Company Number: US-009507513-2002USA000394

PATIENT
  Sex: Female

DRUGS (1)
  1. NEXPLANON [Suspect]
     Active Substance: ETONOGESTREL
     Dosage: 1 IMPLANT
     Dates: start: 20191230

REACTIONS (5)
  - Product quality issue [Unknown]
  - Device difficult to use [Recovered/Resolved]
  - Device expulsion [Not Recovered/Not Resolved]
  - Implant site haemorrhage [Recovered/Resolved]
  - Implant site discolouration [Unknown]

NARRATIVE: CASE EVENT DATE: 20191230
